FAERS Safety Report 13333078 (Version 1)
Quarter: 2017Q1

REPORT INFORMATION
  Report Type: Report from Study
  Country: US (occurrence: US)
  Receive Date: 20170314
  Receipt Date: 20170314
  Transmission Date: 20170428
  Serious: Yes (Hospitalization)
  Sender: FDA-Public Use
  Company Number: US-PFIZER INC-2017102054

PATIENT
  Age: 56 Year
  Sex: Female

DRUGS (1)
  1. IBRANCE [Suspect]
     Active Substance: PALBOCICLIB
     Indication: BREAST CANCER FEMALE
     Dosage: 125 MG, CYCLIC (DAILY FOR DAY1-DAY 21 FOLLOWED BY 7 DAYS OFF)
     Route: 048
     Dates: start: 20160727

REACTIONS (3)
  - Fatigue [Unknown]
  - Diarrhoea [Unknown]
  - Cerebrovascular accident [Unknown]
